FAERS Safety Report 7205662-1 (Version None)
Quarter: 2010Q4

REPORT INFORMATION
  Report Type: 
  Country: None (occurrence: None)
  Receive Date: 20101231
  Receipt Date: 20101214
  Transmission Date: 20110411
  Serious: Yes (Other)
  Sender: FDA-Public Use
  Company Number: PHHY2010US85616

PATIENT

DRUGS (1)
  1. RITALIN [Suspect]

REACTIONS (5)
  - BRAIN INJURY [None]
  - CONVULSION [None]
  - OTORRHOEA [None]
  - TINNITUS [None]
  - VISUAL IMPAIRMENT [None]
